FAERS Safety Report 6195484-5 (Version None)
Quarter: 2009Q2

REPORT INFORMATION
  Report Type: 
  Country: None (occurrence: None)
  Receive Date: 20090519
  Receipt Date: 20090515
  Transmission Date: 20091009
  Serious: Yes (Hospitalization)
  Sender: FDA-Public Use
  Company Number: FR-PFIZER INC-2009213558

PATIENT
  Age: 80 Year

DRUGS (17)
  1. TAHOR [Suspect]
     Dosage: 10 MG, UNK
     Route: 048
  2. NOVOMIX [Suspect]
     Indication: TYPE 2 DIABETES MELLITUS
     Route: 058
  3. DEROXAT [Suspect]
     Dosage: 20 MG, UNK
     Route: 048
     Dates: start: 20080916
  4. NICARDIPINE HCL [Concomitant]
     Dosage: 2 DF, 1X/DAY
  5. NITRODERM [Concomitant]
  6. CAPTOPRIL [Concomitant]
  7. KARDEGIC [Concomitant]
  8. LEVOTHYROX [Concomitant]
  9. SPECIAFOLDINE [Concomitant]
  10. LORAZEPAM [Concomitant]
  11. CACIT [Concomitant]
  12. TROSPIUM CHLORIDE [Concomitant]
  13. STRONTIUM RANELATE [Concomitant]
  14. FORLAX [Concomitant]
  15. TRAMADOL HCL [Concomitant]
  16. NEXIUM [Concomitant]
  17. NEBIVOLOL HYDROCHLORIDE [Concomitant]

REACTIONS (1)
  - HYPOGLYCAEMIA [None]
